FAERS Safety Report 17989168 (Version 1)
Quarter: 2020Q3

REPORT INFORMATION
  Report Type: Spontaneous
  Country: US (occurrence: US)
  Receive Date: 20200707
  Receipt Date: 20200707
  Transmission Date: 20201103
  Serious: Yes (Hospitalization)
  Sender: FDA-Public Use
  Company Number: US-ROCHE-2634158

PATIENT

DRUGS (2)
  1. OCREVUS [Suspect]
     Active Substance: OCRELIZUMAB
     Indication: PRIMARY PROGRESSIVE MULTIPLE SCLEROSIS
  2. OCREVUS [Suspect]
     Active Substance: OCRELIZUMAB
     Indication: RELAPSING MULTIPLE SCLEROSIS
     Dosage: INITIAL DOSE TWICE A WEEK FOLLOWED BY 600 MG EVERY 6 MONTHS.
     Route: 042

REACTIONS (3)
  - Dyspnoea [Unknown]
  - Pyrexia [Unknown]
  - Cough [Unknown]
